FAERS Safety Report 24242228 (Version 3)
Quarter: 2024Q3

REPORT INFORMATION
  Report Type: Spontaneous
  Country: FR (occurrence: FR)
  Receive Date: 20240823
  Receipt Date: 20240911
  Transmission Date: 20241017
  Serious: Yes (Hospitalization)
  Sender: ACCORD
  Company Number: None

PATIENT
  Age: 51 Year
  Sex: Female
  Weight: 82 kg

DRUGS (5)
  1. GEMCITABINE [Suspect]
     Active Substance: GEMCITABINE
     Indication: Hodgkin^s disease
     Dosage: STRENGTH: 100MG/ML, 1940MG ON D1 AND D8
     Dates: start: 20240711, end: 20240718
  2. DOXORUBICIN [Suspect]
     Active Substance: DOXORUBICIN
     Indication: Hodgkin^s disease
     Dosage: STRENGTH: 2MG/ML, ?29.1 MG ON D1 AND D8
     Dates: start: 20240711, end: 20240718
  3. NAVELBINE [Suspect]
     Active Substance: VINORELBINE TARTRATE
     Indication: Hodgkin^s disease
     Dosage: STRENGTH: 10 MG/1 ML, VIAL, 38.8MG ON D1 AND D8
     Dates: start: 20240711, end: 20240718
  4. ADCETRIS [Suspect]
     Active Substance: BRENTUXIMAB VEDOTIN
     Indication: Hodgkin^s disease
     Dosage: STRENGTH: 50 MG
     Dates: start: 20240711, end: 20240711
  5. BACTRIM [Concomitant]
     Active Substance: SULFAMETHOXAZOLE\TRIMETHOPRIM
     Indication: Antibiotic prophylaxis
     Dates: end: 20240718

REACTIONS (3)
  - Neutropenia [Recovered/Resolved]
  - Colitis [Recovered/Resolved]
  - Hepatitis [Recovered/Resolved]

NARRATIVE: CASE EVENT DATE: 20240718
